FAERS Safety Report 4845871-X (Version None)
Quarter: 2005Q4

REPORT INFORMATION
  Report Type: 
  Country: None (occurrence: None)
  Receive Date: 20051130
  Receipt Date: 20051121
  Transmission Date: 20060501
  Serious: Yes (Hospitalization)
  Sender: FDA-Public Use
  Company Number: 2005-135014-NL

PATIENT
  Age: 42 Year
  Sex: Male

DRUGS (4)
  1. MIRTAZAPINE [Suspect]
     Indication: BIPOLAR I DISORDER
     Dosage: 15 MG BID/15 MG ORAL
     Route: 048
     Dates: start: 20050801, end: 20050101
  2. MIRTAZAPINE [Suspect]
     Indication: BIPOLAR I DISORDER
     Dosage: 15 MG BID/15 MG ORAL
     Route: 048
     Dates: end: 20050101
  3. HALOPERIDOL [Concomitant]
  4. LITHIUM CARBONATE [Concomitant]

REACTIONS (3)
  - DIZZINESS [None]
  - EPILEPSY [None]
  - FATIGUE [None]
